FAERS Safety Report 7572865-6 (Version None)
Quarter: 2011Q2

REPORT INFORMATION
  Report Type: 
  Country: None (occurrence: None)
  Receive Date: 20110627
  Receipt Date: 20110620
  Transmission Date: 20111010
  Serious: Yes (Death, Hospitalization, Other)
  Sender: FDA-Public Use
  Company Number: LT-ELI_LILLY_AND_COMPANY-LT201106002220

PATIENT
  Age: 37 Year
  Sex: Male
  Weight: 78 kg

DRUGS (5)
  1. ZYPREXA [Suspect]
     Indication: SCHIZOPHRENIA
     Dosage: 15 MG, QD
     Dates: start: 20090101
  2. ZYPREXA [Suspect]
     Dosage: 20 MG, QD
  3. LORAFEN [Concomitant]
     Dosage: 2.5 MG, QD
     Route: 048
  4. OLANZAPINE [Suspect]
     Indication: SCHIZOPHRENIA
     Dosage: 210 MG, MONTHLY (1/M)
     Route: 030
     Dates: start: 20110329
  5. OLANZAPINE [Suspect]
     Dosage: 300 MG, MONTHLY (1/M)
     Dates: start: 20110420

REACTIONS (6)
  - COMPLETED SUICIDE [None]
  - ANXIETY [None]
  - SUICIDE ATTEMPT [None]
  - DEPRESSION [None]
  - HOSPITALISATION [None]
  - HALLUCINATION, AUDITORY [None]
